FAERS Safety Report 23995720 (Version 3)
Quarter: 2025Q3

REPORT INFORMATION
  Report Type: Report from Study
  Country: CA (occurrence: CA)
  Receive Date: 20240620
  Receipt Date: 20250723
  Transmission Date: 20251020
  Serious: Yes (Other)
  Sender: JOHNSON AND JOHNSON
  Company Number: CA-JNJFOC-20240562368

PATIENT
  Age: 67 Year
  Sex: Male

DRUGS (4)
  1. SIMPONI [Suspect]
     Active Substance: GOLIMUMAB
     Indication: Rheumatoid arthritis
     Route: 058
  2. SIMPONI [Suspect]
     Active Substance: GOLIMUMAB
     Route: 058
     Dates: start: 20240501
  3. SIMPONI [Suspect]
     Active Substance: GOLIMUMAB
     Dosage: LAST DOSE ON 27-JUN-2025
     Route: 058
     Dates: end: 20250627
  4. VENTOLIN [Concomitant]
     Active Substance: ALBUTEROL SULFATE
     Indication: Product used for unknown indication

REACTIONS (3)
  - Pneumonia [Recovering/Resolving]
  - Headache [Recovering/Resolving]
  - Therapy cessation [Unknown]
